FAERS Safety Report 9358455 (Version 1)
Quarter: 2013Q2

REPORT INFORMATION
  Report Type: Spontaneous
  Country: US (occurrence: US)
  Receive Date: 20130620
  Receipt Date: 20130620
  Transmission Date: 20140414
  Serious: Yes (Hospitalization)
  Sender: FDA-Public Use
  Company Number: US-B.I. PHARMACEUTICALS,INC./RIDGEFIELD-2013-BI-17276BP

PATIENT
  Age: 64 Year
  Sex: Male
  Weight: 79 kg

DRUGS (6)
  1. COMBIVENT [Suspect]
     Indication: ASTHMA
     Dosage: STRENGTH: 18 MCG / 103 MCG; DAILY DOSE: 144 MCG/ 824 MG
     Route: 055
     Dates: end: 20130603
  2. COMBIVENT [Suspect]
     Indication: ASTHMA
     Dosage: STRENGTH: 20 MCG / 100 MCG; DAILY DOSE: 80 MCG/ 400 MCG
     Route: 055
     Dates: start: 20130604
  3. HYDROCHLOROTHIAZIDE [Concomitant]
     Dosage: 12.5 MG
     Route: 048
  4. LORAZEPAM [Concomitant]
     Route: 048
  5. ASPIRIN [Concomitant]
     Dosage: 81 MG
     Route: 048
  6. IRBESARTAN [Concomitant]
     Indication: HYPERTENSION
     Dosage: 300 MG
     Route: 048

REACTIONS (7)
  - Myocardial infarction [Recovered/Resolved]
  - Pulmonary congestion [Not Recovered/Not Resolved]
  - Lung disorder [Not Recovered/Not Resolved]
  - Headache [Recovered/Resolved]
  - Tinnitus [Not Recovered/Not Resolved]
  - Dyspnoea [Not Recovered/Not Resolved]
  - Coronary artery occlusion [Not Recovered/Not Resolved]
